FAERS Safety Report 14011822 (Version 1)
Quarter: 2017Q3

REPORT INFORMATION
  Report Type: Spontaneous
  Country: US (occurrence: US)
  Receive Date: 20170926
  Receipt Date: 20170926
  Transmission Date: 20171128
  Serious: Yes (Other)
  Sender: FDA-Public Use
  Company Number: PHHY2017US137634

PATIENT
  Age: 54 Year
  Sex: Male

DRUGS (1)
  1. ETANERCEPT [Suspect]
     Active Substance: ETANERCEPT
     Indication: PSORIATIC ARTHROPATHY
     Route: 065

REACTIONS (11)
  - Cough [Recovered/Resolved]
  - Vision blurred [Recovered/Resolved]
  - Headache [Recovered/Resolved]
  - Diplopia [Recovered/Resolved]
  - Eye disorder [Recovered/Resolved]
  - Areflexia [Not Recovered/Not Resolved]
  - Miller Fisher syndrome [Recovered/Resolved]
  - Eyelid ptosis [Recovered/Resolved]
  - Miosis [Recovered/Resolved]
  - Eye pain [Recovered/Resolved]
  - Rhinitis [Recovered/Resolved]
